FAERS Safety Report 18262957 (Version 1)
Quarter: 2020Q3

REPORT INFORMATION
  Report Type: Spontaneous
  Country: US (occurrence: US)
  Receive Date: 20200914
  Receipt Date: 20200914
  Transmission Date: 20201103
  Serious: Yes (Disabling, Other)
  Sender: FDA-Public Use
  Company Number: None

PATIENT
  Age: 39 Year
  Sex: Female
  Weight: 106.65 kg

DRUGS (2)
  1. ALLEGRA [Suspect]
     Active Substance: FEXOFENADINE HYDROCHLORIDE
     Indication: IDIOPATHIC ANGIOEDEMA
     Dosage: ?          QUANTITY:1 TABLET(S);?
     Route: 048
     Dates: start: 20200818, end: 20200825
  2. PEPCID [Suspect]
     Active Substance: FAMOTIDINE

REACTIONS (3)
  - Dissociation [None]
  - Psychotic disorder [None]
  - Hallucination [None]

NARRATIVE: CASE EVENT DATE: 20200901
